FAERS Safety Report 7699123-3 (Version None)
Quarter: 2011Q3

REPORT INFORMATION
  Report Type: 
  Country: None (occurrence: None)
  Receive Date: 20110819
  Receipt Date: 20110818
  Transmission Date: 20111222
  Serious: Yes (Other)
  Sender: FDA-Public Use
  Company Number: CA-MERCK-1108USA02188

PATIENT
  Age: 55 Year
  Sex: Female

DRUGS (4)
  1. ALPHAGAN [Suspect]
     Route: 047
  2. EVISTA [Concomitant]
     Route: 065
  3. TIMOLOL MALEATE [Suspect]
     Route: 047
  4. TRUSOPT [Suspect]
     Route: 047

REACTIONS (2)
  - PARAESTHESIA [None]
  - SENSORY LOSS [None]
